FAERS Safety Report 7097033-6 (Version None)
Quarter: 2010Q4

REPORT INFORMATION
  Report Type: 
  Country: None (occurrence: None)
  Receive Date: 20101111
  Receipt Date: 20091204
  Transmission Date: 20110411
  Serious: No
  Sender: FDA-Public Use
  Company Number: US-KINGPHARMUSA00001-K200901536

PATIENT
  Age: 58 Year
  Sex: Male
  Weight: 72.562 kg

DRUGS (13)
  1. EMBEDA [Suspect]
     Indication: BACK PAIN
     Dosage: 20 MG, EVERY 12 HOURS
     Route: 048
     Dates: end: 20091130
  2. EMBEDA [Suspect]
     Dosage: 20 MG, QD
     Route: 048
     Dates: start: 20091201, end: 20091202
  3. INSULIN [Concomitant]
     Indication: DIABETES MELLITUS
     Dosage: UNK
     Route: 058
  4. VICODIN [Concomitant]
     Indication: BREAKTHROUGH PAIN
     Dosage: UNK
     Route: 048
  5. FORTAMET [Concomitant]
     Indication: DIABETES MELLITUS
     Dosage: UNK
     Route: 048
  6. CRESTOR [Concomitant]
     Indication: BLOOD CHOLESTEROL INCREASED
     Dosage: UNK
     Route: 048
  7. PREVACID [Concomitant]
     Indication: REFLUX OESOPHAGITIS
     Dosage: UNK
     Route: 048
  8. ASPIRIN [Concomitant]
     Dosage: UNK
     Route: 048
  9. PAXIL [Concomitant]
     Indication: DEPRESSION
     Dosage: UNK
     Route: 048
  10. BUDEPRION [Concomitant]
     Indication: DEPRESSION
     Dosage: UNK
     Route: 048
  11. TOPROL-XL [Concomitant]
     Indication: HYPERTENSION
     Dosage: UNK
     Route: 048
  12. NEURONTIN [Concomitant]
     Indication: NEUROPATHY PERIPHERAL
     Route: 048
  13. EPIDURAL INJECTIONS [Concomitant]
     Indication: PAIN

REACTIONS (13)
  - ARTHRALGIA [None]
  - CHILLS [None]
  - DECREASED APPETITE [None]
  - DRUG WITHDRAWAL SYNDROME [None]
  - FATIGUE [None]
  - FEELING COLD [None]
  - FEELING HOT [None]
  - HYPERHIDROSIS [None]
  - HYPERSOMNIA [None]
  - LETHARGY [None]
  - NAUSEA [None]
  - PAIN [None]
  - PAIN IN EXTREMITY [None]
